FAERS Safety Report 7898838-1 (Version None)
Quarter: 2011Q4

REPORT INFORMATION
  Report Type: 
  Country: None (occurrence: None)
  Receive Date: 20111107
  Receipt Date: 20111027
  Transmission Date: 20120403
  Serious: Yes (Hospitalization)
  Sender: FDA-Public Use
  Company Number: FR-ASTRAZENECA-2011SE65211

PATIENT
  Age: 73 Year
  Sex: Female

DRUGS (8)
  1. LEPTICUR [Suspect]
     Route: 048
  2. LORAZEPAM [Suspect]
     Route: 048
  3. LISINOPRIL [Suspect]
     Route: 048
  4. XANAX [Suspect]
     Route: 048
  5. HALDOL [Suspect]
     Route: 065
  6. NEXIUM [Suspect]
     Route: 048
  7. DEPAKOTE [Suspect]
     Route: 048
  8. ESIDRIX [Suspect]
     Route: 048

REACTIONS (4)
  - ESCHERICHIA TEST POSITIVE [None]
  - FALL [None]
  - HYPOTHERMIA [None]
  - BRADYCARDIA [None]
